FAERS Safety Report 6021938-8 (Version None)
Quarter: 2008Q4

REPORT INFORMATION
  Report Type: 
  Country: None (occurrence: None)
  Receive Date: 20081223
  Receipt Date: 20081209
  Transmission Date: 20090506
  Serious: Yes (Hospitalization)
  Sender: FDA-Public Use
  Company Number: 2008003210

PATIENT
  Age: 55 Year
  Sex: Female
  Weight: 87.5 kg

DRUGS (5)
  1. ERLOTINIB (ERLOTINIB) (TABLET) (ERLOTINIB) [Suspect]
     Indication: OVARIAN CANCER
     Dosage: 150 MG, DAYS, 1-28, ORAL
     Route: 048
  2. VIDAZA [Suspect]
     Indication: OVARIAN CANCER
     Dosage: 150 MG, INTRAVENOUS
     Route: 042
  3. VICODIN [Concomitant]
  4. MAGNESIUM OXIDE (MAGNESIUM OXIDE) [Concomitant]
  5. RANITIDINE [Concomitant]

REACTIONS (2)
  - DISEASE PROGRESSION [None]
  - INTESTINAL OBSTRUCTION [None]
